FAERS Safety Report 5358311-1 (Version None)
Quarter: 2007Q2

REPORT INFORMATION
  Report Type: 
  Country: None (occurrence: None)
  Receive Date: 20070614
  Receipt Date: 20070614
  Transmission Date: 20071010
  Serious: No
  Sender: FDA-Public Use
  Company Number: None

PATIENT
  Sex: Male
  Weight: 79 kg

DRUGS (11)
  1. BEVACIZUMAB (RHUMAB VEGF) [Suspect]
     Dosage: 745 MG
     Dates: end: 20061227
  2. FLUOROURACIL [Suspect]
     Dosage: 11173 MG
  3. LEUCOVORIN CALCIUM [Suspect]
     Dosage: 2244 MG
  4. ELOXATIN [Suspect]
     Dosage: 308 MG
  5. ASPIRIN [Concomitant]
  6. DIOVAN [Concomitant]
  7. FLAGYL [Concomitant]
  8. HYDROCHLOROTHIAZIDE [Concomitant]
  9. LIPITOR [Concomitant]
  10. MEGACE [Concomitant]
  11. PROZAC [Concomitant]

REACTIONS (1)
  - PULMONARY EMBOLISM [None]
